FAERS Safety Report 7072588-6 (Version None)
Quarter: 2010Q4

REPORT INFORMATION
  Report Type: 
  Country: None (occurrence: None)
  Receive Date: 20101029
  Receipt Date: 20100415
  Transmission Date: 20110411
  Serious: No
  Sender: FDA-Public Use
  Company Number: A0844734A

PATIENT
  Age: 73 Year
  Sex: Female

DRUGS (7)
  1. ADVAIR DISKUS 100/50 [Suspect]
     Indication: ASTHMA
     Dosage: 1PUFF TWICE PER DAY
     Route: 055
     Dates: start: 20100119, end: 20100212
  2. ZOCOR [Concomitant]
  3. TOPROL-XL [Concomitant]
  4. ASPIRIN [Concomitant]
  5. BONIVA [Concomitant]
  6. SULAR [Concomitant]
  7. DYRENIUM [Concomitant]

REACTIONS (19)
  - ABDOMINAL DISCOMFORT [None]
  - CHEST PAIN [None]
  - CHILLS [None]
  - DIZZINESS [None]
  - DRUG INEFFECTIVE [None]
  - DYSPEPSIA [None]
  - DYSPHAGIA [None]
  - DYSPNOEA [None]
  - GASTROOESOPHAGEAL REFLUX DISEASE [None]
  - HEADACHE [None]
  - LUNG DISORDER [None]
  - MOVEMENT DISORDER [None]
  - MUSCLE SPASMS [None]
  - NAUSEA [None]
  - OESOPHAGITIS [None]
  - PAIN IN EXTREMITY [None]
  - RHONCHI [None]
  - SENSATION OF FOREIGN BODY [None]
  - THROAT IRRITATION [None]
